FAERS Safety Report 10238751 (Version 1)
Quarter: 2014Q1

REPORT INFORMATION
  Report Type: Spontaneous
  Country: US (occurrence: None)
  Receive Date: 20140306
  Receipt Date: 20140306
  Transmission Date: 20141002
  Serious: Yes (Hospitalization)
  Sender: FDA-Public Use
  Company Number: 163-21880-13080738

PATIENT
  Age: 31 Year
  Sex: Female
  Weight: 77.57 kg

DRUGS (17)
  1. REVLIMID (LENALIDOMIDE) (10 MILLIGRAM, CAPSULES) [Suspect]
     Indication: B-CELL LYMPHOMA
     Dosage: 20 MG, 21 IN 21 D, PO
     Route: 048
     Dates: start: 20130506, end: 201306
  2. RITUXIMAB (RITUXIMAB) [Concomitant]
  3. ANTIBIOTICS (ANTIBIOTICS) [Concomitant]
  4. WELLBUTRIN (BUPROPION HYDROCHLORIDE) [Concomitant]
  5. FLAGYL (METRONIDAZOLE) [Concomitant]
  6. QUESTRAN (COLESTYRAMINE) [Concomitant]
  7. CLONAZEPAM (CLONAZEPAM) [Concomitant]
  8. ASPIRIN (ACETYLSALICYLIC ACID) [Concomitant]
  9. ZOLOFT (SERTRALINE HYDROCHLORIDE) [Concomitant]
  10. ZANTAC (RANITIDINE HYDROCHLORIDE) [Concomitant]
  11. ZOFRAN (ONDANSETRON HYDROCHLORIDE) [Concomitant]
  12. POTASSIUM (POTASSIUM) [Concomitant]
  13. ACYCLOVIR (ACICLOVIR) (ACICLOVIR) [Concomitant]
  14. OMEPRAZOLE (OMEPRAZOLE) [Concomitant]
  15. SERTRALINE (SERTRALINE) [Concomitant]
  16. BUPROPION (BUPROPION) [Concomitant]
  17. RANITIDINE (RANITIDINE) [Concomitant]

REACTIONS (2)
  - Febrile neutropenia [None]
  - Pneumonia [None]
